FAERS Safety Report 17564160 (Version 4)
Quarter: 2020Q2

REPORT INFORMATION
  Report Type: Spontaneous
  Country: US (occurrence: US)
  Receive Date: 20200320
  Receipt Date: 20200423
  Transmission Date: 20200713
  Serious: Yes (Hospitalization, Other)
  Sender: FDA-Public Use
  Company Number: US-HORIZON-ACT-0103-2020

PATIENT
  Age: 12 Year
  Sex: Male

DRUGS (4)
  1. CELEXA [Concomitant]
     Active Substance: CITALOPRAM HYDROBROMIDE
     Indication: DEPRESSION
     Dosage: 10MG DAILY
  2. HYDROCODONE [Concomitant]
     Active Substance: HYDROCODONE
     Indication: OSTEOMYELITIS
     Dosage: 7.5MG DAILY
  3. AUGMENTIN [Concomitant]
     Active Substance: AMOXICILLIN\CLAVULANATE POTASSIUM
     Indication: PNEUMONIA
     Dosage: 875MG BID
  4. ACTIMMUNE [Suspect]
     Active Substance: INTERFERON GAMMA-1B
     Indication: OSTEOPETROSIS
     Dosage: 0.15ML (30?G) THREE TIMES WEEKLY
     Route: 058
     Dates: start: 1992

REACTIONS (5)
  - Fistula [Not Recovered/Not Resolved]
  - Abscess jaw [Not Recovered/Not Resolved]
  - Dental operation [Recovered/Resolved]
  - Osteomyelitis [Not Recovered/Not Resolved]
  - Surgery [Unknown]

NARRATIVE: CASE EVENT DATE: 20200229
